FAERS Safety Report 4995769-1 (Version None)
Quarter: 2006Q2

REPORT INFORMATION
  Report Type: 
  Country: None (occurrence: None)
  Receive Date: 20060504
  Receipt Date: 20060425
  Transmission Date: 20061013
  Serious: Yes (Hospitalization)
  Sender: FDA-Public Use
  Company Number: 224419

PATIENT
  Sex: Male

DRUGS (1)
  1. RAPTIVA [Suspect]
     Dates: start: 20051215, end: 20060308

REACTIONS (1)
  - STEVENS-JOHNSON SYNDROME [None]
